FAERS Safety Report 20667935 (Version 1)
Quarter: 2022Q2

REPORT INFORMATION
  Report Type: Spontaneous
  Country: CN (occurrence: CN)
  Receive Date: 20220404
  Receipt Date: 20220404
  Transmission Date: 20220721
  Serious: Yes (Hospitalization)
  Sender: FDA-Public Use
  Company Number: CN-JNJFOC-20220364501

PATIENT
  Age: 69 Year
  Sex: Male
  Weight: 50 kg

DRUGS (6)
  1. ERLEADA [Suspect]
     Active Substance: APALUTAMIDE
     Indication: Prostate cancer
     Route: 048
     Dates: start: 20220224, end: 20220321
  2. ERLEADA [Suspect]
     Active Substance: APALUTAMIDE
     Route: 048
  3. UBENIMEX [Concomitant]
     Active Substance: UBENIMEX
     Indication: Immune enhancement therapy
     Route: 048
     Dates: start: 20220224, end: 20220321
  4. METHYLCOBALAMIN [Concomitant]
     Active Substance: METHYLCOBALAMIN
     Indication: Neuropathy peripheral
     Route: 048
     Dates: start: 20220224, end: 20220321
  5. TAMSULOSIN [Concomitant]
     Active Substance: TAMSULOSIN
     Indication: Dysuria
     Route: 048
     Dates: start: 20220224, end: 20220321
  6. MEGESTROL [Concomitant]
     Active Substance: MEGESTROL
     Indication: Prostate cancer
     Route: 048
     Dates: start: 20220224, end: 20220321

REACTIONS (2)
  - Toxic epidermal necrolysis [Unknown]
  - Urinary retention [Unknown]

NARRATIVE: CASE EVENT DATE: 20220317
